FAERS Safety Report 24064050 (Version 1)
Quarter: 2024Q3

REPORT INFORMATION
  Report Type: Report from Study
  Country: AU (occurrence: AU)
  Receive Date: 20240709
  Receipt Date: 20240709
  Transmission Date: 20241017
  Serious: Yes (Other)
  Sender: RANBAXY
  Company Number: AU-SUN PHARMACEUTICAL INDUSTRIES LTD-2024R1-454054

PATIENT
  Age: 53 Year
  Sex: Male

DRUGS (8)
  1. SOTALOL [Suspect]
     Active Substance: SOTALOL
     Indication: Ventricular tachycardia
     Dosage: 320 MILLIGRAM, DAILY
     Route: 065
  2. SOTALOL [Suspect]
     Active Substance: SOTALOL
     Indication: Atrial fibrillation
  3. WARFARIN [Suspect]
     Active Substance: WARFARIN
     Indication: Ventricular tachycardia
     Dosage: UNK
     Route: 065
  4. WARFARIN [Suspect]
     Active Substance: WARFARIN
     Indication: Atrial fibrillation
  5. PERINDOPRIL [Suspect]
     Active Substance: PERINDOPRIL
     Indication: Ventricular tachycardia
     Route: 065
  6. PERINDOPRIL [Suspect]
     Active Substance: PERINDOPRIL
     Indication: Atrial fibrillation
  7. ATORVASTATIN [Suspect]
     Active Substance: ATORVASTATIN
     Indication: Ventricular tachycardia
     Route: 065
  8. ATORVASTATIN [Suspect]
     Active Substance: ATORVASTATIN
     Indication: Atrial fibrillation

REACTIONS (1)
  - Electrocardiogram QT prolonged [Unknown]
